FAERS Safety Report 6208848-8 (Version None)
Quarter: 2009Q2

REPORT INFORMATION
  Report Type: 
  Country: None (occurrence: None)
  Receive Date: 20090529
  Receipt Date: 20090515
  Transmission Date: 20091009
  Serious: Yes (Hospitalization)
  Sender: FDA-Public Use
  Company Number: A0786147A

PATIENT
  Age: 52 Year
  Sex: Male
  Weight: 134.1 kg

DRUGS (11)
  1. AVANDIA [Suspect]
     Dosage: 4MG TWICE PER DAY
     Dates: start: 20050901, end: 20070601
  2. ACTOS [Concomitant]
     Dates: start: 20070601, end: 20071226
  3. METFORMIN HCL [Concomitant]
     Dates: start: 20060117
  4. ASPIRIN [Concomitant]
  5. JANUMET [Concomitant]
  6. ASPIRIN [Concomitant]
  7. GLUCOPHAGE [Concomitant]
  8. SYNTHROID [Concomitant]
  9. AMARYL [Concomitant]
  10. CRESTOR [Concomitant]
  11. LOPRESSOR [Concomitant]

REACTIONS (11)
  - ARTERIOSCLEROSIS [None]
  - CARDIAC FAILURE CONGESTIVE [None]
  - CHEST PAIN [None]
  - CORONARY ARTERY DISEASE [None]
  - HYPERTENSION [None]
  - MYOCARDIAL INFARCTION [None]
  - MYOCARDIAL ISCHAEMIA [None]
  - OEDEMA [None]
  - PALPITATIONS [None]
  - PERIPHERAL VASCULAR DISORDER [None]
  - VENTRICULAR TACHYCARDIA [None]
